FAERS Safety Report 11980387 (Version 1)
Quarter: 2016Q1

REPORT INFORMATION
  Report Type: Spontaneous
  Country: US (occurrence: US)
  Receive Date: 20160129
  Receipt Date: 20160129
  Transmission Date: 20160526
  Serious: No
  Sender: FDA-Public Use
  Company Number: US-PFIZER INC-2016046411

PATIENT
  Sex: Female

DRUGS (5)
  1. LYRICA [Suspect]
     Active Substance: PREGABALIN
     Dosage: TAKING THAT PRESCRIPTION AS THREE
     Route: 048
  2. LYRICA [Suspect]
     Active Substance: PREGABALIN
     Dosage: 600 MG, UNK
     Route: 048
  3. LYRICA [Suspect]
     Active Substance: PREGABALIN
     Dosage: TAKING ONE IN THE MORNING AND THEN ONE EVERY 8 HOURS FOLLOWING
     Route: 048
  4. LYRICA [Suspect]
     Active Substance: PREGABALIN
     Dosage: 150 MG ONE CAPSULE FOR SEVEN DAYS AND THEN TAKE TWO CAPSULES AT BEDTIME AFTER THAT
     Route: 048
  5. PREMARIN [Concomitant]
     Active Substance: ESTROGENS, CONJUGATED

REACTIONS (2)
  - Intentional product misuse [Unknown]
  - Drug ineffective [Unknown]
